FAERS Safety Report 13064606 (Version 1)
Quarter: 2016Q4

REPORT INFORMATION
  Report Type: Spontaneous
  Country: US (occurrence: US)
  Receive Date: 20161225
  Receipt Date: 20161225
  Transmission Date: 20170207
  Serious: Yes (Life-Threatening, Hospitalization)
  Sender: FDA-Public Use
  Company Number: None

PATIENT
  Age: 36 Year
  Sex: Female
  Weight: 72.9 kg

DRUGS (1)
  1. LEVONORGESTREL + ESTRADIOL MYLAN [Suspect]
     Active Substance: ETHINYL ESTRADIOL\LEVONORGESTREL
     Indication: CONTRACEPTION
     Dosage: ?          QUANTITY:1 TABLET(S);?
     Route: 048
     Dates: start: 20160502, end: 20161214

REACTIONS (2)
  - Deep vein thrombosis [None]
  - Pulmonary embolism [None]

NARRATIVE: CASE EVENT DATE: 20161214
